FAERS Safety Report 9052614 (Version 1)
Quarter: 2013Q1

REPORT INFORMATION
  Report Type: Spontaneous
  Country: US (occurrence: US)
  Receive Date: 20130207
  Receipt Date: 20130207
  Transmission Date: 20140127
  Serious: Yes (Hospitalization, Other)
  Sender: FDA-Public Use
  Company Number: US-PFIZER INC-US-WYE-H12655009

PATIENT
  Age: 43 Year
  Sex: Female
  Weight: 111 kg

DRUGS (16)
  1. PRIMATENE [Suspect]
     Indication: ASTHMA
     Dosage: 1-2 TABLETS FOUR TIMES A DAY
     Route: 048
     Dates: start: 1975, end: 1999
  2. PRIMATENE [Suspect]
     Dosage: UNK (25/400MG), 4X/DAY
     Route: 048
  3. PREDNISONE [Suspect]
     Dosage: UNK
  4. ATIVAN [Suspect]
     Dosage: UNK
  5. BRONKAID [Suspect]
     Indication: ASTHMA
     Dosage: UNK (3 TABLETS TOGETHER), DAILY
     Route: 048
  6. ADVAIR [Suspect]
     Indication: NASOPHARYNGITIS
     Dosage: UNK
  7. SEROQUEL [Suspect]
     Dosage: UNK
  8. HALDOL [Suspect]
     Dosage: UNK
  9. SILVER [Suspect]
     Indication: NASAL SEPTUM PERFORATION
     Dosage: UNK
  10. METHYLPREDNISOLONE [Suspect]
     Dosage: UNK
  11. NASALCROM [Concomitant]
     Dosage: UNK
  12. GLYBURIDE [Concomitant]
     Dosage: UNK
  13. METFORMIN [Concomitant]
     Dosage: UNK
  14. SINGULAIR [Concomitant]
     Indication: HOUSE DUST ALLERGY
     Dosage: 10 MG, DAILY
  15. SYNTHROID [Concomitant]
     Dosage: 0.88 UG, DAILY
  16. ALEVE [Concomitant]
     Indication: BACK DISORDER
     Dosage: UNK

REACTIONS (15)
  - Nervousness [Not Recovered/Not Resolved]
  - Feeling abnormal [Unknown]
  - Dizziness [Unknown]
  - Pre-existing condition improved [Unknown]
  - Therapeutic response unexpected [Unknown]
  - Cellulitis [Unknown]
  - Osteomyelitis [Unknown]
  - Oedema [Unknown]
  - Fluid retention [Unknown]
  - Diabetes mellitus [Unknown]
  - Drug ineffective [Unknown]
  - Nasal dryness [Recovered/Resolved]
  - Cough [Not Recovered/Not Resolved]
  - Rhinorrhoea [Not Recovered/Not Resolved]
  - Mucous membrane disorder [Not Recovered/Not Resolved]
